FAERS Safety Report 8443680-6 (Version None)
Quarter: 2012Q2

REPORT INFORMATION
  Report Type: 
  Country: None (occurrence: None)
  Receive Date: 20120618
  Receipt Date: 20120608
  Transmission Date: 20120825
  Serious: Yes (Hospitalization, Other)
  Sender: FDA-Public Use
  Company Number: FR-JNJFOC-20120606703

PATIENT
  Sex: Female

DRUGS (6)
  1. METFORMIN HCL [Concomitant]
     Indication: TYPE 2 DIABETES MELLITUS
     Route: 065
  2. LEVOTHYROXINE SODIUM [Concomitant]
     Indication: HYPOTHYROIDISM
     Route: 065
  3. ZOPICLONE [Concomitant]
     Indication: PRODUCT USED FOR UNKNOWN INDICATION
     Route: 065
  4. VALACYCLOVIR HYDROCHLORIDE [Concomitant]
     Indication: HERPES VIRUS INFECTION
     Route: 065
     Dates: start: 20120424
  5. STELARA [Suspect]
     Indication: PSORIASIS
     Route: 058
     Dates: start: 20120424, end: 20120424
  6. TRIMETAZIDINE [Concomitant]
     Indication: PRODUCT USED FOR UNKNOWN INDICATION
     Route: 065

REACTIONS (1)
  - CEREBROVASCULAR ACCIDENT [None]
